FAERS Safety Report 14929502 (Version 2)
Quarter: 2018Q3

REPORT INFORMATION
  Report Type: Report from Study
  Country: US (occurrence: US)
  Receive Date: 20180523
  Receipt Date: 20180702
  Transmission Date: 20181010
  Serious: Yes (Other)
  Sender: FDA-Public Use
  Company Number: PHEH2018US019209

PATIENT
  Age: 64 Year
  Sex: Female
  Weight: 52 kg

DRUGS (2)
  1. ENTRESTO [Suspect]
     Active Substance: SACUBITRIL\VALSARTAN
     Dosage: 1 DF (49/51 MG), BID
     Route: 048
     Dates: start: 20180328
  2. ENTRESTO [Suspect]
     Active Substance: SACUBITRIL\VALSARTAN
     Indication: CARDIAC FAILURE CONGESTIVE
     Dosage: 1 DF (97MG SACUBITRIL/103MG VALSARTAN), BID
     Route: 048
     Dates: start: 20180305, end: 20180326

REACTIONS (8)
  - Clostridium difficile colitis [Recovered/Resolved]
  - Pyrexia [Unknown]
  - Weight decreased [Unknown]
  - Hypotension [Recovered/Resolved]
  - Sepsis [Unknown]
  - Diarrhoea [Unknown]
  - Hypovolaemia [Unknown]
  - Blood pressure systolic decreased [Unknown]

NARRATIVE: CASE EVENT DATE: 20180326
